FAERS Safety Report 9410190 (Version 1)
Quarter: 2013Q2

REPORT INFORMATION
  Report Type: Spontaneous
  Country: FR (occurrence: None)
  Receive Date: 20130404
  Receipt Date: 20130404
  Transmission Date: 20140414
  Serious: Yes (Hospitalization)
  Sender: FDA-Public Use
  Company Number: ENTC2013-0119

PATIENT
  Age: 69 Year
  Sex: Female

DRUGS (5)
  1. STALEVO (LEVODOPA, CARBIDOPA, ENTACAPONE) [Suspect]
     Indication: PARKINSON^S DISEASE
     Dates: end: 20130302
  2. MOTILIUM [Suspect]
  3. APOKINON [Suspect]
  4. MODOPAR [Suspect]
     Indication: PARKINSON^S DISEASE
  5. REQUIP [Suspect]
     Indication: PARKINSON^S DISEASE

REACTIONS (1)
  - Atrial fibrillation [None]
